FAERS Safety Report 14285535 (Version 1)
Quarter: 2017Q4

REPORT INFORMATION
  Report Type: Spontaneous
  Country: US (occurrence: None)
  Receive Date: 20171214
  Receipt Date: 20171214
  Transmission Date: 20180321
  Serious: Yes (Death, Hospitalization, Other)
  Sender: FDA-Public Use
  Company Number: None

PATIENT

DRUGS (1)
  1. DIPHENOXYLATE HYDROCHLORIDE ATROPINE SULFATE [Suspect]
     Active Substance: ATROPINE\DIPHENOXYLATE HYDROCHLORIDE
     Dates: start: 20170928, end: 20171010

REACTIONS (3)
  - Diarrhoea [None]
  - Condition aggravated [None]
  - Product use issue [None]

NARRATIVE: CASE EVENT DATE: 20171012
